FAERS Safety Report 5239701-4 (Version None)
Quarter: 2007Q1

REPORT INFORMATION
  Report Type: 
  Country: None (occurrence: None)
  Receive Date: 20070216
  Receipt Date: 20070209
  Transmission Date: 20070707
  Serious: Yes (Hospitalization)
  Sender: FDA-Public Use
  Company Number: DK-SANOFI-SYNTHELABO-A01200700342

PATIENT
  Age: 56 Year
  Sex: Female
  Weight: 88 kg

DRUGS (8)
  1. ELOXATIN [Suspect]
     Indication: COLORECTAL CANCER
     Dosage: 170 MG
     Route: 042
     Dates: start: 20070108, end: 20070108
  2. ELOXATIN [Suspect]
  3. PRIMPERAN [Concomitant]
  4. VOGALENE [Concomitant]
  5. PREDNISOLONE [Concomitant]
  6. ZOFRAN [Concomitant]
  7. CALCIUM FOLINATE [Suspect]
     Dosage: 400 MG
     Route: 042
     Dates: start: 20070108, end: 20070108
  8. FLUOROURACIL [Suspect]
     Dosage: BOLUS 800MG + CONTINUOUS INFUSION 4800MG OVER 46 HOURS
     Route: 042
     Dates: start: 20070108, end: 20070109

REACTIONS (2)
  - ARRHYTHMIA SUPRAVENTRICULAR [None]
  - VENTRICULAR ARRHYTHMIA [None]
